FAERS Safety Report 7455374-4 (Version None)
Quarter: 2011Q2

REPORT INFORMATION
  Report Type: 
  Country: None (occurrence: None)
  Receive Date: 20110503
  Receipt Date: 20110421
  Transmission Date: 20111010
  Serious: Yes (Hospitalization)
  Sender: FDA-Public Use
  Company Number: KR-TYCO HEALTHCARE/MALLINCKRODT-T201100834

PATIENT
  Age: 58 Year
  Sex: Female

DRUGS (2)
  1. OPTIRAY 350 [Suspect]
     Indication: ANGIOGRAM CEREBRAL
     Dosage: UNK
     Route: 065
  2. OXYGEN [Concomitant]
     Route: 045

REACTIONS (3)
  - SOMNOLENCE [None]
  - APHASIA [None]
  - HEMIPARESIS [None]
